FAERS Safety Report 9105918 (Version 1)
Quarter: 2013Q1

REPORT INFORMATION
  Report Type: Spontaneous
  Country: FR (occurrence: FR)
  Receive Date: 20130220
  Receipt Date: 20130220
  Transmission Date: 20140127
  Serious: Yes (Life-Threatening, Hospitalization, Other)
  Sender: FDA-Public Use
  Company Number: FR-BRISTOL-MYERS SQUIBB COMPANY-17374281

PATIENT
  Age: 73 Year
  Sex: Female

DRUGS (16)
  1. COAPROVEL FILM-COATED TABS 300/12.5 MG [Suspect]
     Dosage: 1DF:(IRBESARTAN 300 MG, HYDROCHLOROTHIAZIDE 12.5 MG) FILM-COATED TABLET ?STOP DATE: 14DEC12
     Route: 048
     Dates: end: 20121214
  2. FUROSEMIDE [Interacting]
     Route: 048
     Dates: end: 20121214
  3. ACLASTA [Interacting]
     Indication: OSTEOPOROSIS
     Route: 042
     Dates: start: 20121121
  4. DEPAKINE [Concomitant]
     Dosage: 1DF:500 UNITS NOS
  5. LEVOTHYROX [Concomitant]
     Dosage: 1DF:100 UNITS NOS
  6. CACIT D3 [Concomitant]
  7. LAMALINE [Concomitant]
  8. SEROPLEX [Concomitant]
  9. IMOVANE [Concomitant]
  10. METFORMIN [Concomitant]
  11. RISPERDAL [Concomitant]
  12. PRAVASTATIN SODIUM [Concomitant]
  13. EUCREAS [Concomitant]
  14. AKINETON [Concomitant]
  15. IPERTEN [Concomitant]
  16. TRANSIPEG [Concomitant]

REACTIONS (5)
  - Renal failure acute [Not Recovered/Not Resolved]
  - Renal tubular necrosis [Not Recovered/Not Resolved]
  - Hyperkalaemia [Recovered/Resolved]
  - Fall [Unknown]
  - Drug interaction [Unknown]
